FAERS Safety Report 7249151-7 (Version None)
Quarter: 2011Q1

REPORT INFORMATION
  Report Type: 
  Country: None (occurrence: None)
  Receive Date: 20110128
  Receipt Date: 20101110
  Transmission Date: 20110831
  Serious: Yes (Hospitalization, Other)
  Sender: FDA-Public Use
  Company Number: US-BAYER-201025965NA

PATIENT
  Sex: Female
  Weight: 55 kg

DRUGS (19)
  1. YAZ [Suspect]
     Indication: PREMENSTRUAL SYNDROME
  2. YASMIN [Suspect]
     Indication: CONTRACEPTION
     Dosage: UNK UNK, UNK
     Route: 048
     Dates: start: 20030701, end: 20050923
  3. YASMIN [Suspect]
     Indication: PREMENSTRUAL SYNDROME
  4. ZYRTEC [Concomitant]
     Indication: MULTIPLE ALLERGIES
     Dosage: 10 MG, QD
     Route: 048
     Dates: start: 20031006
  5. MEPROZINE [Concomitant]
     Dosage: 25 MG, QID
     Dates: start: 20070712
  6. NITROFURANTOIN [Concomitant]
     Indication: INFECTION
     Dosage: 100 MG, BID
     Route: 048
     Dates: start: 20071105
  7. YAZ [Suspect]
     Indication: ACNE
  8. CIPROFLOXACIN [Concomitant]
     Indication: PHARYNGITIS
     Dosage: 500 MG, BID
     Dates: start: 20030917
  9. NASONEX [Concomitant]
     Indication: PRODUCT USED FOR UNKNOWN INDICATION
     Dosage: 50 MCG/24HR, UNK
     Route: 045
     Dates: start: 20030917
  10. AVELOX [Concomitant]
     Indication: INFECTION
     Dosage: 400 MG, QD
     Route: 048
     Dates: start: 20050915
  11. MEPROZINE [Concomitant]
     Indication: PRODUCT USED FOR UNKNOWN INDICATION
     Dosage: 50 MG, QID
     Route: 048
     Dates: start: 20050501
  12. DRIXORAL [Concomitant]
     Indication: PRODUCT USED FOR UNKNOWN INDICATION
     Dosage: UNK
     Dates: start: 20070101
  13. ZITHROMAX [Concomitant]
     Indication: INFECTION
     Dosage: 250 MG, UNK
     Route: 048
     Dates: start: 20031103
  14. CLARINEX [Concomitant]
     Indication: PRODUCT USED FOR UNKNOWN INDICATION
     Route: 048
  15. YASMIN [Suspect]
     Indication: ACNE
  16. YAZ [Suspect]
     Indication: CONTRACEPTION
     Dosage: UNK UNK, UNK
     Route: 048
     Dates: start: 20070423, end: 20090901
  17. ALLEGRA-D 12 HOUR [Concomitant]
     Indication: MULTIPLE ALLERGIES
     Dosage: 60 MG, UNK
     Route: 048
     Dates: start: 20030929
  18. HYDROMET [HOMATROPINE METHYLBROMIDE,HYDROCODONE BITARTRATE] [Concomitant]
     Indication: PRODUCT USED FOR UNKNOWN INDICATION
     Dosage: 1 UNK, UNK
     Route: 048
     Dates: start: 20090703
  19. PREDNISOLONE ACETATE [Concomitant]
     Indication: PRODUCT USED FOR UNKNOWN INDICATION
     Dosage: UNK
     Dates: start: 20050927

REACTIONS (10)
  - ABDOMINAL PAIN [None]
  - CHOLECYSTITIS ACUTE [None]
  - DIARRHOEA [None]
  - CHOLECYSTITIS CHRONIC [None]
  - ABDOMINAL DISTENSION [None]
  - ANHEDONIA [None]
  - CHOLELITHIASIS [None]
  - GALLBLADDER ENLARGEMENT [None]
  - ABDOMINAL TENDERNESS [None]
  - VOMITING [None]
